APPROVED DRUG PRODUCT: AMPICILLIN AND SULBACTAM
Active Ingredient: AMPICILLIN SODIUM; SULBACTAM SODIUM
Strength: EQ 1GM BASE/VIAL;EQ 500MG BASE/VIAL
Dosage Form/Route: INJECTABLE;INJECTION
Application: A065406 | Product #001 | TE Code: AP
Applicant: ACS DOBFAR SPA
Approved: Dec 22, 2009 | RLD: No | RS: No | Type: RX